FAERS Safety Report 19770189 (Version 5)
Quarter: 2022Q2

REPORT INFORMATION
  Report Type: Spontaneous
  Country: US (occurrence: US)
  Receive Date: 20210901
  Receipt Date: 20220602
  Transmission Date: 20220720
  Serious: No
  Sender: FDA-Public Use
  Company Number: US-ELI_LILLY_AND_COMPANY-US202109000218

PATIENT

DRUGS (1)
  1. TRULICITY [Suspect]
     Active Substance: DULAGLUTIDE
     Indication: Product used for unknown indication
     Dosage: UNK UNK, UNKNOWN
     Route: 065

REACTIONS (7)
  - Retinopathy [Unknown]
  - Visual impairment [Unknown]
  - Eye pain [Unknown]
  - Eye injury [Unknown]
  - Illness [Unknown]
  - Diabetic retinopathy [Unknown]
  - Vomiting [Unknown]
